FAERS Safety Report 7885553-3 (Version None)
Quarter: 2011Q4

REPORT INFORMATION
  Report Type: 
  Country: None (occurrence: None)
  Receive Date: 20111102
  Receipt Date: 20110623
  Transmission Date: 20120403
  Serious: No
  Sender: FDA-Public Use
  Company Number: US-AMGEN-USASP2011032227

PATIENT
  Age: 62 Year
  Sex: Male

DRUGS (5)
  1. ENBREL [Suspect]
     Indication: PRODUCT USED FOR UNKNOWN INDICATION
     Dosage: 40 MG, QWK
  2. METOPROLOL TARTRATE [Concomitant]
     Dosage: 25 MG, UNK
  3. CADUET [Concomitant]
     Dosage: 2.5 MG, UNK
  4. ZOCOR [Concomitant]
     Dosage: 5 MG, UNK
  5. WARFARIN SODIUM [Concomitant]
     Dosage: 1 MG, UNK

REACTIONS (2)
  - OEDEMA PERIPHERAL [None]
  - SKIN WARM [None]
